FAERS Safety Report 15675301 (Version 1)
Quarter: 2018Q4

REPORT INFORMATION
  Report Type: Spontaneous
  Country: US (occurrence: US)
  Receive Date: 20181129
  Receipt Date: 20181129
  Transmission Date: 20190205
  Serious: Yes (Disabling)
  Sender: FDA-Public Use
  Company Number: None

PATIENT
  Age: 47 Year
  Sex: Female
  Weight: 43.2 kg

DRUGS (5)
  1. SEROQUEL [Concomitant]
     Active Substance: QUETIAPINE FUMARATE
  2. LAMICTAL [Concomitant]
     Active Substance: LAMOTRIGINE
  3. AUSTEDO [Suspect]
     Active Substance: DEUTETRABENAZINE
     Indication: TARDIVE DYSKINESIA
     Route: 048
     Dates: start: 20180418, end: 20181001
  4. CA SUPPLEMENT [Concomitant]
  5. VIT D SUPPLEMENT [Concomitant]

REACTIONS (4)
  - Mental fatigue [None]
  - Contusion [None]
  - Hepatic enzyme increased [None]
  - Weight decreased [None]

NARRATIVE: CASE EVENT DATE: 20180701
